FAERS Safety Report 15953223 (Version 1)
Quarter: 2019Q1

REPORT INFORMATION
  Report Type: Spontaneous
  Country: US (occurrence: US)
  Receive Date: 20190211
  Receipt Date: 20190211
  Transmission Date: 20190417
  Serious: No
  Sender: FDA-Public Use
  Company Number: US-PFIZER INC-2017323978

PATIENT
  Age: 23 Year
  Sex: Female

DRUGS (2)
  1. GENOTROPIN MQ [Suspect]
     Active Substance: SOMATROPIN
     Indication: DIABETES INSIPIDUS
  2. GENOTROPIN MQ [Suspect]
     Active Substance: SOMATROPIN
     Indication: CRANIOPHARYNGIOMA
     Dosage: 1.6 MG, DAILY
     Route: 058

REACTIONS (3)
  - Obesity [Unknown]
  - Lipids increased [Unknown]
  - Product use in unapproved indication [Unknown]
